FAERS Safety Report 19549187 (Version 1)
Quarter: 2021Q3

REPORT INFORMATION
  Report Type: Spontaneous
  Country: FR (occurrence: FR)
  Receive Date: 20210715
  Receipt Date: 20210715
  Transmission Date: 20211014
  Serious: Yes (Hospitalization, Other)
  Sender: FDA-Public Use
  Company Number: FR-SA-2021SA228625

PATIENT
  Age: 27 Year
  Sex: Female
  Weight: 51 kg

DRUGS (2)
  1. RIFINAH [Suspect]
     Active Substance: ISONIAZID\RIFAMPIN
     Indication: BONE TUBERCULOSIS
     Dosage: 5 DF, QD
     Route: 048
     Dates: start: 20210527, end: 20210604
  2. RIFATER [Suspect]
     Active Substance: ISONIAZID\PYRAZINAMIDE\RIFAMPIN
     Indication: BONE TUBERCULOSIS
     Dosage: 2 DF, QD
     Route: 048
     Dates: start: 20210527, end: 20210604

REACTIONS (2)
  - Product administration error [Recovered/Resolved]
  - Hepatic cytolysis [Recovering/Resolving]

NARRATIVE: CASE EVENT DATE: 20210604
